FAERS Safety Report 17313009 (Version 2)
Quarter: 2020Q1

REPORT INFORMATION
  Report Type: Spontaneous
  Country: CA (occurrence: CA)
  Receive Date: 20200124
  Receipt Date: 20200128
  Transmission Date: 20200409
  Serious: Yes (Hospitalization, Other)
  Sender: FDA-Public Use
  Company Number: CA-AUROBINDO-AUR-APL-2020-003176

PATIENT
  Age: 16 Year
  Sex: Female

DRUGS (1)
  1. AMOXICILLIN. [Suspect]
     Active Substance: AMOXICILLIN
     Indication: TONSILLITIS
     Dosage: UNK
     Route: 065

REACTIONS (10)
  - Granulomatosis with polyangiitis [Recovered/Resolved]
  - Rash [Recovered/Resolved]
  - Serum sickness-like reaction [Recovered/Resolved]
  - Cough [Recovered/Resolved]
  - Haemoptysis [Recovered/Resolved]
  - Pleural effusion [Recovered/Resolved]
  - Pulmonary haemorrhage [Recovered/Resolved]
  - Peripheral swelling [Recovered/Resolved]
  - Lung consolidation [Recovered/Resolved]
  - Pyrexia [Recovered/Resolved]
